FAERS Safety Report 20095295 (Version 2)
Quarter: 2022Q1

REPORT INFORMATION
  Report Type: Report from Study
  Country: GB (occurrence: GB)
  Receive Date: 20211122
  Receipt Date: 20220215
  Transmission Date: 20220423
  Serious: Yes (Hospitalization)
  Sender: FDA-Public Use
  Company Number: GB-GLAXOSMITHKLINE-GB2021GSK234623

PATIENT
  Age: 55 Year
  Sex: Male
  Weight: 81.6 kg

DRUGS (12)
  1. BELANTAMAB MAFODOTIN [Suspect]
     Active Substance: BELANTAMAB MAFODOTIN
     Indication: Plasma cell myeloma
     Dosage: MG/KG, Z(EVERY 3 WEEKS)
     Route: 042
     Dates: start: 20210701
  2. BENDAMUSTINE [Suspect]
     Active Substance: BENDAMUSTINE
     Indication: Product used for unknown indication
     Dosage: UNK
     Dates: end: 20210408
  3. ASPIRIN [Concomitant]
     Active Substance: ASPIRIN
  4. TINZAPARIN [Concomitant]
     Active Substance: TINZAPARIN
  5. VENLAFAXINE [Concomitant]
     Active Substance: VENLAFAXINE HYDROCHLORIDE
  6. GLICLAZIDE [Concomitant]
     Active Substance: GLICLAZIDE
  7. LANSOPRAZOLE [Concomitant]
     Active Substance: LANSOPRAZOLE
  8. PENICILLIN V [Concomitant]
     Active Substance: PENICILLIN V
  9. CARMELLOSE EYE DROPS [Concomitant]
  10. METFORMIN [Concomitant]
     Active Substance: METFORMIN HYDROCHLORIDE
  11. CALCIUM CARBONATE\CHOLECALCIFEROL [Concomitant]
     Active Substance: CALCIUM CARBONATE\CHOLECALCIFEROL
  12. FERROUS SULFATE [Concomitant]
     Active Substance: FERROUS SULFATE

REACTIONS (1)
  - Herpes zoster [Not Recovered/Not Resolved]

NARRATIVE: CASE EVENT DATE: 20211108
